FAERS Safety Report 10787510 (Version 1)
Quarter: 2015Q1

REPORT INFORMATION
  Report Type: Spontaneous
  Country: BE (occurrence: BE)
  Receive Date: 20150212
  Receipt Date: 20150212
  Transmission Date: 20150721
  Serious: Yes (Other)
  Sender: FDA-Public Use
  Company Number: BE-BEH-2015048485

PATIENT
  Age: 54 Year
  Sex: Female

DRUGS (1)
  1. HIZENTRA [Suspect]
     Active Substance: HUMAN IMMUNOGLOBULIN G
     Indication: PRODUCT USED FOR UNKNOWN INDICATION
     Route: 058

REACTIONS (5)
  - Back pain [Unknown]
  - Respiratory tract infection [Unknown]
  - Pyrexia [Unknown]
  - Arthritis [Unknown]
  - Tendonitis [Unknown]

NARRATIVE: CASE EVENT DATE: 20150130
